FAERS Safety Report 8187590-0 (Version None)
Quarter: 2012Q1

REPORT INFORMATION
  Report Type: 
  Country: None (occurrence: None)
  Receive Date: 20120306
  Receipt Date: 20120222
  Transmission Date: 20120608
  Serious: Yes (Hospitalization)
  Sender: FDA-Public Use
  Company Number: US-ELI_LILLY_AND_COMPANY-US201202006712

PATIENT
  Sex: Female

DRUGS (11)
  1. ZOFRAN [Concomitant]
  2. CARDIZEM [Concomitant]
  3. KYTRIL [Concomitant]
  4. LORAZEPAM [Concomitant]
  5. MORPHINE SULFATE [Concomitant]
  6. LISINOPRIL [Concomitant]
  7. URECHOLINE [Concomitant]
  8. THIAMINE HCL [Concomitant]
  9. PHENERGAN [Concomitant]
  10. FERROUS SULFATE TAB [Concomitant]
  11. CYMBALTA [Suspect]
     Dosage: 60 MG, QD

REACTIONS (1)
  - IMPAIRED GASTRIC EMPTYING [None]
